FAERS Safety Report 17721497 (Version 2)
Quarter: 2020Q2

REPORT INFORMATION
  Report Type: Spontaneous
  Country: US (occurrence: US)
  Receive Date: 20200429
  Receipt Date: 20200528
  Transmission Date: 20200714
  Serious: Yes (Other)
  Sender: FDA-Public Use
  Company Number: US-AMGEN-USASP2020066829

PATIENT
  Age: 73 Year
  Sex: Female

DRUGS (29)
  1. REPATHA [Suspect]
     Active Substance: EVOLOCUMAB
     Indication: TYPE V HYPERLIPIDAEMIA
  2. MULTIVITAMINS [VITAMINS NOS] [Concomitant]
     Active Substance: VITAMINS
     Route: 048
  3. PROTONIX [Concomitant]
     Active Substance: PANTOPRAZOLE SODIUM
     Dosage: 40 MILLIGRAM, QD
     Route: 048
  4. PRALUENT [Concomitant]
     Active Substance: ALIROCUMAB
  5. TRUSOPT [Concomitant]
     Active Substance: DORZOLAMIDE HYDROCHLORIDE
  6. GLUCOPHAGE XR [Concomitant]
     Active Substance: METFORMIN HYDROCHLORIDE
     Dosage: 500 MILLIGRAM, BID
     Route: 048
  7. COENZYME Q10 [UBIDECARENONE] [Concomitant]
     Dosage: 40 MILLIGRAM, QD
     Route: 048
  8. VITAMIN E [Concomitant]
     Active Substance: .ALPHA.-TOCOPHEROL
     Dosage: 400 UNIT, BID
     Route: 048
  9. ASTELIN [Concomitant]
     Active Substance: AZELASTINE HYDROCHLORIDE
     Dosage: PLACE 1 SPRAY INTO BOTH, NOSTRILS 2 (TWO) TIMES
  10. COMBIGAN [Concomitant]
     Active Substance: BRIMONIDINE TARTRATE\TIMOLOL MALEATE
     Dosage: PLACE 1 DROP INTO BOTH EYES 2 (TWO) TIMES
  11. CHLORTAB [CHLORPHENAMINE MALEATE] [Concomitant]
     Indication: HYPERSENSITIVITY
     Dosage: 4 MILLIGRAM, BID
     Route: 048
  12. ZETIA [Concomitant]
     Active Substance: EZETIMIBE
  13. CORTEF [Concomitant]
     Active Substance: HYDROCORTISONE
     Dosage: 10 MILLIGRAM
  14. LAMISIL [TERBINAFINE HYDROCHLORIDE] [Concomitant]
     Dosage: 250 MILLIGRAM, QD
     Route: 048
  15. TYLENOL [Concomitant]
     Active Substance: ACETAMINOPHEN
     Indication: PAIN
     Dosage: 1000 MILLIGRAM, QD AS NEEDED
     Route: 048
  16. CREATINE MONOHYDRATE [Concomitant]
     Active Substance: CREATINE MONOHYDRATE
     Route: 048
  17. DDAVP [Concomitant]
     Active Substance: DESMOPRESSIN ACETATE
     Dosage: 0.1 MILLIGRAM
  18. PRED FORTE [Concomitant]
     Active Substance: PREDNISOLONE ACETATE
     Dosage: ONE DROP INTO AFFECTED EYE
  19. REPATHA [Suspect]
     Active Substance: EVOLOCUMAB
     Indication: BLOOD CHOLESTEROL ABNORMAL
     Dosage: 140 MILLIGRAM, Q2WK
     Route: 058
     Dates: start: 20191127
  20. FLEXERIL [Concomitant]
     Active Substance: CYCLOBENZAPRINE HYDROCHLORIDE
     Indication: MUSCLE SPASMS
     Dosage: 10 MILLIGRAM, TID
     Route: 048
  21. RESTASIS [Concomitant]
     Active Substance: CYCLOSPORINE
  22. FLONASE [Concomitant]
     Active Substance: FLUTICASONE PROPIONATE
     Dosage: 50 MICROGRAM, PLACE 2 SPRAYS INTO
     Route: 045
  23. SYNTHROID [Concomitant]
     Active Substance: LEVOTHYROXINE SODIUM
     Dosage: 100 MICROGRAM, AS NECESSARY
     Route: 048
  24. MELATONIN [Concomitant]
     Active Substance: MELATONIN
     Dosage: 10 MILLIGRAM, NIGHTLY AS NEEDED
     Route: 048
  25. PROTONIX [Concomitant]
     Active Substance: PANTOPRAZOLE SODIUM
     Dosage: 20 MILLIGRAM, QD
     Route: 048
  26. FLAXSEED OIL [LINUM USITATISSIMUM OIL] [Concomitant]
     Dosage: UNK UNK, QD
     Route: 048
  27. SOLU-CORTEF [Concomitant]
     Active Substance: HYDROCORTISONE SODIUM SUCCINATE
     Indication: ADRENOCORTICAL INSUFFICIENCY ACUTE
     Dosage: 50 MILLIGRAM PER MILLILITRE, AS NECESSARY
     Route: 058
  28. SYSTANE ULTRA [Concomitant]
     Active Substance: POLYETHYLENE GLYCOL 400\PROPYLENE GLYCOL
     Indication: DRY EYE
     Dosage: PLACE I DROP INTO BOTH EYES ONCE DAILY AS
  29. DELTASONE [PREDNISOLONE] [Concomitant]
     Dosage: 2.5 MILLIGRAM

REACTIONS (5)
  - Hypopituitarism [Unknown]
  - Device difficult to use [Unknown]
  - Adverse event [Unknown]
  - Dementia [Unknown]
  - Pollakiuria [Recovering/Resolving]

NARRATIVE: CASE EVENT DATE: 20200414
